FAERS Safety Report 8307202-2 (Version None)
Quarter: 2012Q2

REPORT INFORMATION
  Report Type: 
  Country: None (occurrence: None)
  Receive Date: 20120424
  Receipt Date: 20120419
  Transmission Date: 20120825
  Serious: No
  Sender: FDA-Public Use
  Company Number: US-PFIZER INC-2012084158

PATIENT
  Sex: Female
  Weight: 6 kg

DRUGS (7)
  1. LIPITOR [Concomitant]
     Indication: BLOOD CHOLESTEROL INCREASED
     Dosage: UNK
  2. SUTENT [Suspect]
     Dosage: 25 MG, UNK
     Dates: start: 20120401
  3. SYNTHROID [Concomitant]
     Dosage: UNK
  4. SUTENT [Suspect]
     Indication: METASTATIC RENAL CELL CARCINOMA
     Dosage: 50 MG, UNK
     Dates: start: 20110708
  5. TRICOR [Concomitant]
     Indication: BLOOD TRIGLYCERIDES INCREASED
     Dosage: UNK
  6. IMODIUM [Concomitant]
     Dosage: UNK
  7. BENAZEPRIL [Concomitant]
     Indication: BLOOD PRESSURE
     Dosage: UNK

REACTIONS (5)
  - YELLOW SKIN [None]
  - THYROID DISORDER [None]
  - PHOTOSENSITIVITY REACTION [None]
  - HAIR COLOUR CHANGES [None]
  - DIARRHOEA [None]
